FAERS Safety Report 15225534 (Version 2)
Quarter: 2018Q3

REPORT INFORMATION
  Report Type: Spontaneous
  Country: US (occurrence: US)
  Receive Date: 20180801
  Receipt Date: 20180820
  Transmission Date: 20181010
  Serious: No
  Sender: FDA-Public Use
  Company Number: US-ELI_LILLY_AND_COMPANY-US201807014516

PATIENT
  Age: 67 Year
  Sex: Female

DRUGS (2)
  1. VERZENIO [Suspect]
     Active Substance: ABEMACICLIB
     Dosage: 150 MG, UNKNOWN
     Route: 048
     Dates: end: 20180808
  2. VERZENIO [Suspect]
     Active Substance: ABEMACICLIB
     Indication: BREAST CANCER
     Dosage: 150 MG, UNKNOWN
     Route: 048
     Dates: start: 20180723

REACTIONS (5)
  - Skin exfoliation [Unknown]
  - Diarrhoea [Unknown]
  - Eyelids pruritus [Unknown]
  - Paraesthesia [Unknown]
  - Nausea [Recovered/Resolved]
